FAERS Safety Report 7338032-6 (Version None)
Quarter: 2011Q1

REPORT INFORMATION
  Report Type: 
  Country: None (occurrence: None)
  Receive Date: 20110228
  Receipt Date: 20110217
  Transmission Date: 20110831
  Serious: Yes (Death)
  Sender: FDA-Public Use
  Company Number: AE11-031-3

PATIENT
  Age: 47 Year
  Sex: Female

DRUGS (2)
  1. BUTALBITAL/CAFFEINE/SALICYLATE [Suspect]
  2. ACETAMINOPHEN/OXYCODONE [Suspect]

REACTIONS (3)
  - CARDIAC ARREST [None]
  - RESPIRATORY ARREST [None]
  - COMPLETED SUICIDE [None]
